FAERS Safety Report 18959306 (Version 4)
Quarter: 2021Q4

REPORT INFORMATION
  Report Type: Spontaneous
  Country: IT (occurrence: IT)
  Receive Date: 20210302
  Receipt Date: 20211013
  Transmission Date: 20220303
  Serious: Yes (Life-Threatening, Hospitalization, Other)
  Sender: FDA-Public Use
  Company Number: IT-PFIZER INC-2021171928

PATIENT
  Age: 41 Year
  Sex: Female
  Weight: 60.5 kg

DRUGS (1)
  1. GEMCITABINE HYDROCHLORIDE [Suspect]
     Active Substance: GEMCITABINE HYDROCHLORIDE
     Indication: Ovarian cancer
     Dosage: UNK, CYCLIC 1000MG/M2, ON DAYS 1,8,15 IN A 28-DAY CYCLE
     Dates: start: 201909, end: 202001

REACTIONS (2)
  - Congestive cardiomyopathy [Recovered/Resolved]
  - Cardiac failure congestive [Recovered/Resolved]
